FAERS Safety Report 21577230 (Version 1)
Quarter: 2022Q4

REPORT INFORMATION
  Report Type: Report from Study
  Country: US (occurrence: US)
  Receive Date: 20221110
  Receipt Date: 20221110
  Transmission Date: 20230113
  Serious: Yes (Other)
  Sender: FDA-Public Use
  Company Number: US-ABBVIE-22K-163-4408025-00

PATIENT
  Age: 81 Year
  Sex: Male

DRUGS (4)
  1. IMBRUVICA [Suspect]
     Active Substance: IBRUTINIB
     Indication: Chronic lymphocytic leukaemia
     Dosage: TIME INTERVAL: 0.33333333 DAYS
     Route: 048
     Dates: end: 202111
  2. IMBRUVICA [Suspect]
     Active Substance: IBRUTINIB
     Indication: Chronic lymphocytic leukaemia
     Dosage: THERAPY START DATE : --2022
     Route: 048
     Dates: end: 202203
  3. IMBRUVICA [Suspect]
     Active Substance: IBRUTINIB
     Indication: Chronic lymphocytic leukaemia
     Dosage: THERAPY START DATE : --2022
     Route: 048
  4. IMODIUM [Suspect]
     Active Substance: LOPERAMIDE HYDROCHLORIDE
     Indication: Product used for unknown indication
     Route: 065

REACTIONS (11)
  - Dysuria [Not Recovered/Not Resolved]
  - Feeling abnormal [Not Recovered/Not Resolved]
  - Depression [Unknown]
  - Feeling of despair [Not Recovered/Not Resolved]
  - Accident [Unknown]
  - Constipation [Unknown]
  - Diarrhoea [Recovered/Resolved]
  - Neuropathy peripheral [Unknown]
  - Diarrhoea [Recovered/Resolved]
  - Decreased appetite [Unknown]
  - Contusion [Unknown]

NARRATIVE: CASE EVENT DATE: 20211101
